FAERS Safety Report 10753577 (Version 1)
Quarter: 2015Q1

REPORT INFORMATION
  Report Type: Spontaneous
  Country: IE (occurrence: IE)
  Receive Date: 20150131
  Receipt Date: 20150131
  Transmission Date: 20150721
  Serious: Yes (Other)
  Sender: FDA-Public Use
  Company Number: IE-EMD SERONO-7138865

PATIENT
  Sex: Male

DRUGS (4)
  1. REBIF [Suspect]
     Active Substance: INTERFERON BETA-1A
     Indication: RELAPSING-REMITTING MULTIPLE SCLEROSIS
     Route: 058
     Dates: start: 19990109
  2. NEURONTIN [Concomitant]
     Active Substance: GABAPENTIN
     Route: 048
     Dates: start: 2003
  3. AMITRIPTOLENE (AMITRIPTYLINE) [Concomitant]
     Indication: MUSCLE SPASMS
     Route: 048
     Dates: start: 2003
  4. NEURONTIN [Concomitant]
     Active Substance: GABAPENTIN
     Indication: BURNING SENSATION
     Route: 048
     Dates: start: 2003

REACTIONS (2)
  - Prostatic specific antigen increased [Unknown]
  - Prostate cancer [Unknown]
